FAERS Safety Report 8583087-4 (Version None)
Quarter: 2012Q2

REPORT INFORMATION
  Report Type: 
  Country: None (occurrence: None)
  Receive Date: 20120423
  Receipt Date: 20091005
  Transmission Date: 20120825
  Serious: Yes (Death)
  Sender: FDA-Public Use
  Company Number: PHEH2009US13092

PATIENT
  Age: 64 Year
  Sex: Male

DRUGS (1)
  1. EXJADE [Suspect]
     Dosage: 2000 MG, QD, ORAL
     Route: 048

REACTIONS (2)
  - DISEASE PROGRESSION [None]
  - NEOPLASM MALIGNANT [None]
